FAERS Safety Report 8531211-1 (Version None)
Quarter: 2012Q3

REPORT INFORMATION
  Report Type: 
  Country: None (occurrence: None)
  Receive Date: 20120723
  Receipt Date: 20120709
  Transmission Date: 20120928
  Serious: Yes (Hospitalization, Other)
  Sender: FDA-Public Use
  Company Number: US-ELI_LILLY_AND_COMPANY-US201207002743

PATIENT
  Age: 63 Year
  Sex: Male

DRUGS (3)
  1. WELLBUTRIN [Concomitant]
  2. ADDERALL 5 [Concomitant]
  3. CYMBALTA [Suspect]
     Indication: DEPRESSION
     Dosage: 90 MG, UNK

REACTIONS (3)
  - SEROTONIN SYNDROME [None]
  - RENAL FAILURE [None]
  - KNEE OPERATION [None]
